FAERS Safety Report 9917193 (Version 1)
Quarter: 2014Q1

REPORT INFORMATION
  Report Type: Report from Study
  Country: CO (occurrence: CO)
  Receive Date: 20140221
  Receipt Date: 20140221
  Transmission Date: 20141002
  Serious: Yes (Hospitalization)
  Sender: FDA-Public Use
  Company Number: CO-ABBVIE-14P-036-1204335-00

PATIENT
  Age: 49 Year
  Sex: Male
  Weight: 93 kg

DRUGS (1)
  1. HUMIRA [Suspect]
     Indication: PSORIASIS
     Route: 058
     Dates: start: 20120813

REACTIONS (3)
  - Deep vein thrombosis [Recovering/Resolving]
  - Pain in extremity [Recovering/Resolving]
  - Inflammation [Recovering/Resolving]
